FAERS Safety Report 25273015 (Version 1)
Quarter: 2025Q2

REPORT INFORMATION
  Report Type: Spontaneous
  Country: CH (occurrence: CH)
  Receive Date: 20250506
  Receipt Date: 20250506
  Transmission Date: 20250717
  Serious: Yes (Hospitalization)
  Sender: NOVARTIS
  Company Number: None

PATIENT
  Age: 65 Year
  Sex: Male

DRUGS (15)
  1. VANCOMYCIN HYDROCHLORIDE [Suspect]
     Active Substance: VANCOMYCIN HYDROCHLORIDE
     Indication: Product used for unknown indication
     Route: 042
     Dates: start: 20241219, end: 20241223
  2. ENTRESTO [Suspect]
     Active Substance: SACUBITRIL\VALSARTAN
     Indication: Product used for unknown indication
     Route: 048
     Dates: end: 20241223
  3. ENTRESTO [Suspect]
     Active Substance: SACUBITRIL\VALSARTAN
     Route: 048
     Dates: start: 20241230
  4. ARCOXIA [Suspect]
     Active Substance: ETORICOXIB
     Indication: Product used for unknown indication
     Route: 048
     Dates: start: 20241220, end: 20241220
  5. ARCOXIA [Suspect]
     Active Substance: ETORICOXIB
     Route: 048
     Dates: start: 20241225, end: 20241225
  6. ARCOXIA [Suspect]
     Active Substance: ETORICOXIB
     Route: 048
     Dates: start: 20241226, end: 20241226
  7. NOXAFIL [Interacting]
     Active Substance: POSACONAZOLE
     Indication: Product used for unknown indication
     Route: 048
     Dates: start: 20250105
  8. PROGRAF [Interacting]
     Active Substance: TACROLIMUS
     Indication: Product used for unknown indication
     Dosage: 5 MG, Q12H
     Route: 048
     Dates: start: 20241210, end: 20241213
  9. PROGRAF [Interacting]
     Active Substance: TACROLIMUS
     Dosage: 7 MG, Q12H
     Route: 048
     Dates: start: 20241214, end: 20241215
  10. PROGRAF [Interacting]
     Active Substance: TACROLIMUS
     Dosage: 8 MG, Q12H
     Route: 048
     Dates: start: 20241216, end: 20241217
  11. PROGRAF [Interacting]
     Active Substance: TACROLIMUS
     Dosage: 4 MG, Q12H
     Route: 042
     Dates: start: 20241219, end: 20241219
  12. PROGRAF [Interacting]
     Active Substance: TACROLIMUS
     Dosage: 5 MG, Q12H
     Route: 042
     Dates: start: 20241220, end: 20241221
  13. PROGRAF [Interacting]
     Active Substance: TACROLIMUS
     Dosage: 4 MG, Q12H
     Route: 042
     Dates: start: 20241222, end: 20241222
  14. PROGRAF [Interacting]
     Active Substance: TACROLIMUS
     Route: 042
     Dates: start: 20241223, end: 20241223
  15. PROGRAF [Interacting]
     Active Substance: TACROLIMUS
     Dosage: 1 DOSAGE FORM, QD (PAUSE FROM 24DEC24, CONTINUED P.O. FROM 25DEC24 AFTER DETERMINATION OF DRUG LEVEL
     Route: 048
     Dates: start: 20241225

REACTIONS (4)
  - Drug level above therapeutic [Recovered/Resolved]
  - Nephropathy toxic [Recovering/Resolving]
  - Drug interaction [Recovering/Resolving]
  - Nephropathy toxic [Recovering/Resolving]

NARRATIVE: CASE EVENT DATE: 20241223
